FAERS Safety Report 10190359 (Version 1)
Quarter: 2014Q2

REPORT INFORMATION
  Report Type: Spontaneous
  Country: FR (occurrence: FR)
  Receive Date: 20140522
  Receipt Date: 20140522
  Transmission Date: 20141212
  Serious: Yes (Death, Life-Threatening)
  Sender: FDA-Public Use
  Company Number: FR-JNJFOC-20140511175

PATIENT
  Age: 89 Year
  Sex: Female

DRUGS (9)
  1. XARELTO [Suspect]
     Indication: CEREBROVASCULAR ACCIDENT PROPHYLAXIS
     Route: 048
     Dates: start: 20130909, end: 20140325
  2. XARELTO [Suspect]
     Indication: ATRIAL FIBRILLATION
     Route: 048
     Dates: start: 20130909, end: 20140325
  3. AMLOR [Concomitant]
     Route: 065
  4. BISOPROLOL HEMIFUMARATE [Concomitant]
     Route: 065
  5. AMIODARONE [Concomitant]
     Route: 065
  6. HEMIGOXINE [Concomitant]
     Route: 065
  7. INEXIUM [Concomitant]
     Route: 065
  8. MIANSERINE RATIOPHARM [Concomitant]
     Route: 065
  9. XANAX [Concomitant]
     Route: 065

REACTIONS (2)
  - Ischaemic stroke [Fatal]
  - Hemiplegia [Fatal]
